FAERS Safety Report 6876036-8 (Version None)
Quarter: 2010Q2

REPORT INFORMATION
  Report Type: 
  Country: None (occurrence: None)
  Receive Date: 20100616
  Receipt Date: 20100331
  Transmission Date: 20101027
  Serious: No
  Sender: FDA-Public Use
  Company Number: DSA_42873_2010

PATIENT
  Sex: Male

DRUGS (3)
  1. XENAZINE [Suspect]
     Indication: TOURETTE'S DISORDER
     Dosage: (12.5 MG BID ORAL)
     Route: 048
  2. HALDOL [Concomitant]
  3. KLONOPIN (UNKNOWN) [Concomitant]

REACTIONS (5)
  - AGITATION [None]
  - ANXIETY [None]
  - FATIGUE [None]
  - NERVOUSNESS [None]
  - SLEEP DISORDER [None]
